FAERS Safety Report 7246863-6 (Version None)
Quarter: 2011Q1

REPORT INFORMATION
  Report Type: 
  Country: None (occurrence: None)
  Receive Date: 20110127
  Receipt Date: 20110113
  Transmission Date: 20110831
  Serious: Yes (Disabling)
  Sender: FDA-Public Use
  Company Number: PHHY2010HU64341

PATIENT
  Age: 57 Year
  Sex: Female

DRUGS (2)
  1. STEROIDS NOS [Concomitant]
     Dosage: UNK
     Dates: start: 20101001
  2. ACLASTA [Suspect]
     Indication: OSTEOPOROSIS
     Dosage: 5 MG, UNK
     Dates: start: 20100617

REACTIONS (5)
  - BLOOD LACTATE DEHYDROGENASE INCREASED [None]
  - MYALGIA [None]
  - BLOOD CREATINE PHOSPHOKINASE INCREASED [None]
  - NECK PAIN [None]
  - BONE PAIN [None]
